FAERS Safety Report 20629511 (Version 2)
Quarter: 2022Q2

REPORT INFORMATION
  Report Type: Spontaneous
  Country: KR (occurrence: KR)
  Receive Date: 20220323
  Receipt Date: 20220405
  Transmission Date: 20220721
  Serious: Yes (Other)
  Sender: FDA-Public Use
  Company Number: KR-TEVA-2022-KR-2018816

PATIENT
  Age: 52 Year
  Sex: Male

DRUGS (1)
  1. DOXORUBICIN [Suspect]
     Active Substance: DOXORUBICIN
     Indication: Hepatocellular carcinoma
     Dosage: UNDERWENT 4 CYCLES TRANSCATHETER ARTERIAL CHEMOEMBOLISATION
     Route: 065

REACTIONS (1)
  - Acute myeloid leukaemia [Unknown]
